FAERS Safety Report 8698429 (Version 2)
Quarter: 2012Q4

REPORT INFORMATION
  Report Type: 
  Country: US (occurrence: US)
  Receive Date: 20120802
  Receipt Date: 20120830
  Transmission Date: 20130627
  Serious: Yes (Hospitalization)
  Sender: FDA-Public Use
  Company Number: US-JNJFOC-20120712734

PATIENT
  Age: 27 Year
  Sex: Male
  Weight: 82.56 kg

DRUGS (5)
  1. INVEGA SUSTENNA [Suspect]
     Indication: SCHIZOPHRENIA
     Route: 030
     Dates: start: 20120423, end: 20120721
  2. BENZTROPINE [Concomitant]
     Indication: MUSCLE TIGHTNESS
     Route: 048
  3. RISPERIDONE [Concomitant]
     Dosage: (bed time)
     Route: 048
  4. CLONAZEPAM [Concomitant]
     Indication: AFFECTIVE DISORDER
     Route: 048
  5. DOCUSATE [Concomitant]
     Indication: ABNORMAL FAECES
     Route: 065

REACTIONS (1)
  - Psychotic disorder [Recovering/Resolving]
